FAERS Safety Report 21151713 (Version 1)
Quarter: 2022Q3

REPORT INFORMATION
  Report Type: Report from Study
  Country: US (occurrence: None)
  Receive Date: 20220730
  Receipt Date: 20220730
  Transmission Date: 20221027
  Serious: Yes (Death, Hospitalization)
  Sender: FDA-Public Use
  Company Number: US-ROCHE-3150232

PATIENT
  Age: 77 Year
  Sex: Male
  Weight: 85.4 kg

DRUGS (2)
  1. OBINUTUZUMAB [Suspect]
     Active Substance: OBINUTUZUMAB
     Indication: Chronic lymphocytic leukaemia
     Dosage: DOSE: 100 MG ON C1D1, 900 MG ON C1D2, 1000 MG ON C1D8 + C1D15, C2-6D1?LAST DOSE PRIOR TO SAE DATE: 2
     Route: 042
     Dates: start: 20210811, end: 20211229
  2. IBRUTINIB [Suspect]
     Active Substance: IBRUTINIB
     Indication: Chronic lymphocytic leukaemia
     Dosage: FOR 15 CYCLES?LAST DOSE PRIOR TO SAE DATE: 21/JUN/2022
     Route: 048
     Dates: start: 20210811

REACTIONS (1)
  - Sepsis [Fatal]

NARRATIVE: CASE EVENT DATE: 20220622
